FAERS Safety Report 5018958-9 (Version None)
Quarter: 2006Q2

REPORT INFORMATION
  Report Type: 
  Country: None (occurrence: None)
  Receive Date: 20060606
  Receipt Date: 20060526
  Transmission Date: 20061013
  Serious: Yes (Other)
  Sender: FDA-Public Use
  Company Number: 2006AP02398

PATIENT
  Age: 82 Year
  Sex: Female

DRUGS (7)
  1. OMEPRAL [Suspect]
     Indication: REFLUX OESOPHAGITIS
     Route: 048
     Dates: start: 20051215, end: 20060510
  2. DICHLOTRIDE [Concomitant]
     Route: 048
  3. PRIMPERAN TAB [Concomitant]
     Route: 048
  4. BIO THREE [Concomitant]
     Route: 048
  5. PROMAC [Concomitant]
     Route: 048
  6. PANVITAN [Concomitant]
     Route: 048
  7. PURSENNID [Concomitant]
     Route: 048

REACTIONS (2)
  - RED BLOOD CELL COUNT DECREASED [None]
  - WHITE BLOOD CELL COUNT DECREASED [None]
